FAERS Safety Report 22298652 (Version 1)
Quarter: 2023Q2

REPORT INFORMATION
  Report Type: Spontaneous
  Country: US (occurrence: None)
  Receive Date: 20230508
  Receipt Date: 20230508
  Transmission Date: 20230721
  Serious: Yes (Hospitalization)
  Sender: FDA-Public Use
  Company Number: None

PATIENT
  Age: 75 Year
  Sex: Male
  Weight: 79.38 kg

DRUGS (11)
  1. ABIRATERONE ACETATE [Suspect]
     Active Substance: ABIRATERONE ACETATE
     Indication: Prostate cancer
     Dosage: 1000MG DAILY ORAL?
     Route: 048
     Dates: start: 20220609
  2. PREDNISONE [Suspect]
     Active Substance: PREDNISONE
     Indication: Prostate cancer
     Dosage: 5MG TWICE DAILY ORAL
     Route: 048
     Dates: start: 20220609
  3. AMLODIPINE [Concomitant]
  4. Aspirin [Concomitant]
  5. ATORVASTATIN [Concomitant]
  6. CALCIUM CARBONATE\VITAMIN D [Concomitant]
     Active Substance: CALCIUM CARBONATE\VITAMIN D
  7. LYRICA [Concomitant]
     Active Substance: PREGABALIN
  8. OXYBUTYNIN [Concomitant]
  9. TAMSULOSIN [Concomitant]
  10. TRAMADOL [Concomitant]
     Active Substance: TRAMADOL
  11. VITAMIN D3 [Concomitant]
     Active Substance: CHOLECALCIFEROL

REACTIONS (4)
  - Asthenia [None]
  - Feeding disorder [None]
  - Pleural effusion [None]
  - Pneumonia [None]

NARRATIVE: CASE EVENT DATE: 20230502
